FAERS Safety Report 6890152-6 (Version None)
Quarter: 2010Q3

REPORT INFORMATION
  Report Type: 
  Country: None (occurrence: None)
  Receive Date: 20100730
  Receipt Date: 20080811
  Transmission Date: 20110219
  Serious: No
  Sender: FDA-Public Use
  Company Number: US-PFIZER INC-2008067610

PATIENT
  Age: 69 Year
  Sex: Male
  Weight: 102.06 kg

DRUGS (1)
  1. LIPITOR [Suspect]
     Indication: BLOOD CHOLESTEROL INCREASED

REACTIONS (2)
  - RASH MACULAR [None]
  - WRONG TECHNIQUE IN DRUG USAGE PROCESS [None]
